FAERS Safety Report 13781667 (Version 1)
Quarter: 2017Q3

REPORT INFORMATION
  Report Type: Spontaneous
  Country: FR (occurrence: FR)
  Receive Date: 20170724
  Receipt Date: 20170724
  Transmission Date: 20171127
  Serious: Yes (Other)
  Sender: FDA-Public Use
  Company Number: FR-PFIZER INC-3010212

PATIENT
  Age: 11 Year
  Sex: Female
  Weight: 119 kg

DRUGS (4)
  1. CARBOPLATIN. [Suspect]
     Active Substance: CARBOPLATIN
     Indication: GLIOMA
     Dosage: 1000 MG, UNK
     Route: 041
     Dates: start: 20150805, end: 20150805
  2. VOGALENE [Concomitant]
     Active Substance: METOPIMAZINE
     Indication: PREMEDICATION
     Route: 048
  3. ZOPHREN /00955301/ [Concomitant]
     Active Substance: ONDANSETRON
     Indication: PREMEDICATION
     Route: 048
  4. VINCRISTINE SULFATE. [Suspect]
     Active Substance: VINCRISTINE SULFATE
     Indication: GLIOMA
     Dosage: UNK
     Route: 041
     Dates: start: 20150805

REACTIONS (5)
  - Urticaria [Recovered/Resolved]
  - Hypersensitivity [Recovered/Resolved]
  - Abdominal pain upper [Recovered/Resolved]
  - Malaise [Recovered/Resolved]
  - Hypoxia [Recovered/Resolved]

NARRATIVE: CASE EVENT DATE: 20150805
